FAERS Safety Report 8439717-0 (Version None)
Quarter: 2012Q2

REPORT INFORMATION
  Report Type: 
  Country: None (occurrence: None)
  Receive Date: 20120323
  Receipt Date: 20110527
  Transmission Date: 20120825
  Serious: Yes (Other)
  Sender: FDA-Public Use
  Company Number: 163-21880-11053872

PATIENT
  Age: 65 Year
  Sex: Male

DRUGS (2)
  1. REVLIMID [Suspect]
     Indication: MULTIPLE MYELOMA
     Dosage: 10 MG, 1 IN 1 D, PO  ,   5 MG, DAILY, PO
     Route: 048
     Dates: start: 20110201
  2. REVLIMID [Suspect]
     Indication: MULTIPLE MYELOMA
     Dosage: 10 MG, 1 IN 1 D, PO  ,   5 MG, DAILY, PO
     Route: 048
     Dates: start: 20100901, end: 20110101

REACTIONS (1)
  - DEEP VEIN THROMBOSIS [None]
